FAERS Safety Report 23328534 (Version 1)
Quarter: 2023Q4

REPORT INFORMATION
  Report Type: Spontaneous
  Country: IT (occurrence: IT)
  Receive Date: 20231221
  Receipt Date: 20231221
  Transmission Date: 20240110
  Serious: Yes (Death, Other)
  Sender: FDA-Public Use
  Company Number: IT-AMGEN-ITASP2023224428

PATIENT

DRUGS (1)
  1. XGEVA [Suspect]
     Active Substance: DENOSUMAB
     Indication: Parathyroid tumour malignant
     Dosage: UNK
     Route: 065

REACTIONS (6)
  - Parathyroid tumour malignant [Fatal]
  - Hyperparathyroidism [Fatal]
  - Ill-defined disorder [Fatal]
  - Metastases to bone [Unknown]
  - Metastases to lung [Unknown]
  - Metastases to liver [Unknown]
